FAERS Safety Report 7736911-9 (Version None)
Quarter: 2011Q3

REPORT INFORMATION
  Report Type: 
  Country: None (occurrence: None)
  Receive Date: 20110902
  Receipt Date: 20110822
  Transmission Date: 20111222
  Serious: Yes (Life-Threatening, Hospitalization)
  Sender: FDA-Public Use
  Company Number: 2011MA012372

PATIENT
  Age: 68 Year
  Sex: Male

DRUGS (8)
  1. AMLODIPINE [Suspect]
  2. PRAZOSIN HCL [Suspect]
  3. CARBIDOPA AND LEVODOPA [Suspect]
     Indication: PARKINSON'S DISEASE
     Dosage: 5 TIMES A DAY; ;Q2H;
  4. ENTACAPONE [Suspect]
     Indication: PARKINSON'S DISEASE
     Dosage: 5 TIMES A DAY;Q2H;
  5. FINASTERIDE [Suspect]
  6. ASPIRIN [Suspect]
  7. NADOLOL [Suspect]
  8. ATORVASTATIN [Suspect]

REACTIONS (20)
  - COGNITIVE DISORDER [None]
  - BUNDLE BRANCH BLOCK RIGHT [None]
  - DELIRIUM [None]
  - HYPERTONIA [None]
  - AGITATION [None]
  - DISORIENTATION [None]
  - RESPIRATORY RATE INCREASED [None]
  - BLADDER CATHETERISATION [None]
  - RESPIRATORY DISTRESS [None]
  - STRIDOR [None]
  - SINUS BRADYCARDIA [None]
  - NEUROLEPTIC MALIGNANT SYNDROME [None]
  - PYREXIA [None]
  - MUSCLE RIGIDITY [None]
  - RHONCHI [None]
  - COMMUNICATION DISORDER [None]
  - INAPPROPRIATE SCHEDULE OF DRUG ADMINISTRATION [None]
  - OXYGEN SATURATION DECREASED [None]
  - ATELECTASIS [None]
  - DRUG WITHDRAWAL SYNDROME [None]
